FAERS Safety Report 8517862-9 (Version None)
Quarter: 2012Q3

REPORT INFORMATION
  Report Type: 
  Country: None (occurrence: None)
  Receive Date: 20120718
  Receipt Date: 20120321
  Transmission Date: 20120928
  Serious: No
  Sender: FDA-Public Use
  Company Number: US-BRISTOL-MYERS SQUIBB COMPANY-15849201

PATIENT
  Age: 81 Year
  Sex: Female
  Weight: 58 kg

DRUGS (12)
  1. MULTAQ [Concomitant]
  2. MULTI-VITAMIN [Concomitant]
  3. FISH OIL [Concomitant]
  4. FOSAMAX [Concomitant]
  5. MAGNESIUM SULFATE [Concomitant]
  6. VITAMIN E [Concomitant]
  7. POTASSIUM CHLORIDE [Concomitant]
  8. VITAMIN D [Concomitant]
  9. COUMADIN [Suspect]
     Indication: ATRIAL FIBRILLATION
     Dosage: EXP DATE 6NOV12
     Route: 048
     Dates: start: 20110616
  10. CRESTOR [Concomitant]
  11. ASCORBIC ACID [Concomitant]
  12. CELEBREX [Concomitant]

REACTIONS (4)
  - GINGIVAL ERYTHEMA [None]
  - ABDOMINAL PAIN UPPER [None]
  - GINGIVAL SWELLING [None]
  - HAEMORRHAGE SUBCUTANEOUS [None]
